FAERS Safety Report 8258375-1 (Version None)
Quarter: 2012Q2

REPORT INFORMATION
  Report Type: 
  Country: None (occurrence: None)
  Receive Date: 20120404
  Receipt Date: 20120403
  Transmission Date: 20120825
  Serious: Yes (Hospitalization)
  Sender: FDA-Public Use
  Company Number: US-PFIZER INC-2012084396

PATIENT
  Sex: Female
  Weight: 90.703 kg

DRUGS (1)
  1. CORVERT [Suspect]
     Indication: ATRIAL FIBRILLATION
     Dosage: 1 MG, UNK
     Dates: start: 20120330, end: 20120330

REACTIONS (1)
  - ESCHERICHIA INFECTION [None]
